FAERS Safety Report 24210887 (Version 2)
Quarter: 2024Q3

REPORT INFORMATION
  Report Type: Spontaneous
  Country: CA (occurrence: CA)
  Receive Date: 20240814
  Receipt Date: 20240830
  Transmission Date: 20241017
  Serious: Yes (Other)
  Sender: SANDOZ
  Company Number: CA-SANDOZ-SDZ2024CA072368

PATIENT
  Sex: Female

DRUGS (1)
  1. ERELZI [Suspect]
     Active Substance: ETANERCEPT-SZZS
     Indication: Rheumatoid arthritis
     Dosage: 50 MG SC WEEKLY; WEEKLY
     Route: 058
     Dates: start: 20240711

REACTIONS (3)
  - Rheumatoid arthritis [Recovering/Resolving]
  - Illness [Unknown]
  - Dizziness [Unknown]
